FAERS Safety Report 8915437 (Version 1)
Quarter: 2012Q4

REPORT INFORMATION
  Report Type: 
  Country: BR (occurrence: BR)
  Receive Date: 20121119
  Receipt Date: 20121119
  Transmission Date: 20130627
  Serious: Yes (Other)
  Sender: FDA-Public Use
  Company Number: BR-PFIZER INC-2012286723

PATIENT
  Sex: Male

DRUGS (1)
  1. TECTA [Suspect]
     Dosage: UNK
     Route: 048
     Dates: start: 20121003

REACTIONS (2)
  - Haemorrhage [Unknown]
  - Coagulation time abnormal [Unknown]
